FAERS Safety Report 8555619-3 (Version None)
Quarter: 2012Q3

REPORT INFORMATION
  Report Type: 
  Country: None (occurrence: None)
  Receive Date: 20120731
  Receipt Date: 20120504
  Transmission Date: 20120928
  Serious: No
  Sender: FDA-Public Use
  Company Number: US-ASTRAZENECA-2010SE28727

PATIENT
  Age: 24 Year
  Sex: Female
  Weight: 90.7 kg

DRUGS (27)
  1. SEROQUEL [Suspect]
     Route: 048
     Dates: start: 20100401, end: 20100601
  2. SEROQUEL [Suspect]
     Route: 048
     Dates: start: 20100401, end: 20100601
  3. SEROQUEL [Suspect]
     Route: 048
     Dates: start: 20100617
  4. SEROQUEL [Suspect]
     Route: 048
     Dates: start: 20100617
  5. SEROQUEL [Suspect]
     Route: 048
  6. SEROQUEL [Suspect]
     Dosage: 100 MG GENERIC FORM
     Route: 048
  7. SEROQUEL [Suspect]
     Dosage: 150 MG GENERIC FORM
     Route: 048
  8. SEROQUEL [Suspect]
     Dosage: 200 MG GENERIC FORM
     Route: 048
  9. SEROQUEL [Suspect]
     Route: 048
     Dates: start: 20100617
  10. SEROQUEL [Suspect]
     Indication: ANXIETY
     Route: 048
     Dates: start: 20050101, end: 20100401
  11. SEROQUEL [Suspect]
     Dosage: 200 MG GENERIC FORM
     Route: 048
  12. SEROQUEL [Suspect]
     Route: 048
  13. SEROQUEL [Suspect]
     Route: 048
  14. KLONOPIN [Concomitant]
  15. SEROQUEL [Suspect]
     Indication: BIPOLAR DISORDER
     Route: 048
     Dates: start: 20050101, end: 20100401
  16. SEROQUEL [Suspect]
     Route: 048
     Dates: start: 20100401, end: 20100601
  17. SEROQUEL [Suspect]
     Route: 048
  18. SEROQUEL [Suspect]
     Dosage: 100 MG GENERIC FORM
     Route: 048
  19. SEROQUEL [Suspect]
     Dosage: 150 MG GENERIC FORM
     Route: 048
  20. SEROQUEL [Suspect]
     Dosage: 200 MG GENERIC FORM
     Route: 048
  21. PAXIL [Concomitant]
  22. SEROQUEL [Suspect]
     Indication: SLEEP DISORDER
     Route: 048
     Dates: start: 20050101, end: 20100401
  23. SEROQUEL [Suspect]
     Route: 048
  24. SEROQUEL [Suspect]
     Route: 048
  25. SEROQUEL [Suspect]
     Dosage: 100 MG GENERIC FORM
     Route: 048
  26. SEROQUEL [Suspect]
     Dosage: 150 MG GENERIC FORM
     Route: 048
  27. PSYCHIATRIC MEDICINE [Concomitant]

REACTIONS (9)
  - MALAISE [None]
  - FEELING ABNORMAL [None]
  - INSOMNIA [None]
  - PALPITATIONS [None]
  - DIZZINESS [None]
  - NAUSEA [None]
  - INTENTIONAL DRUG MISUSE [None]
  - NIGHTMARE [None]
  - HYPOTHYROIDISM [None]
